FAERS Safety Report 15119798 (Version 1)
Quarter: 2018Q3

REPORT INFORMATION
  Report Type: Spontaneous
  Country: ZA (occurrence: ZA)
  Receive Date: 20180709
  Receipt Date: 20180709
  Transmission Date: 20181010
  Serious: Yes (Hospitalization)
  Sender: FDA-Public Use
  Company Number: ZA-DRREDDYS-SAF/SAF/18/0101781

PATIENT
  Sex: Female

DRUGS (10)
  1. SANDOZ BEZAFIBRATE [Suspect]
     Active Substance: BEZAFIBRATE
     Indication: BLOOD CHOLESTEROL
     Route: 048
     Dates: start: 201712
  2. ADCO?BISOCOR [Suspect]
     Active Substance: BISOPROLOL FUMARATE
     Indication: HYPERTENSION
     Route: 048
     Dates: start: 201712
  3. PREXUM [Suspect]
     Active Substance: PERINDOPRIL ERBUMINE
     Indication: HYPERTENSION
     Route: 048
     Dates: start: 201806
  4. FORTZAAR [Suspect]
     Active Substance: HYDROCHLOROTHIAZIDE\LOSARTAN POTASSIUM
     Indication: HYPERTENSION
     Route: 048
     Dates: start: 201712
  5. YELATE [Suspect]
     Active Substance: DULOXETINE HYDROCHLORIDE
     Indication: DEPRESSION
     Route: 048
     Dates: start: 201801
  6. LYRICA [Suspect]
     Active Substance: PREGABALIN
     Indication: EPILEPSY
     Route: 048
     Dates: start: 201712
  7. ATORVASTATIN WINTHROP [Suspect]
     Active Substance: ATORVASTATIN
     Indication: BLOOD CHOLESTEROL
     Route: 048
     Dates: start: 201806
  8. STORWIN [Suspect]
     Active Substance: ROSUVASTATIN CALCIUM
     Indication: BLOOD CHOLESTEROL
     Route: 048
     Dates: start: 201712
  9. AMLOC (AMLODIPINE BESILATE) [Suspect]
     Active Substance: AMLODIPINE BESYLATE
     Indication: HYPERTENSION
     Route: 048
     Dates: start: 201806
  10. XARELTO [Suspect]
     Active Substance: RIVAROXABAN
     Indication: ANTICOAGULANT THERAPY
     Route: 048
     Dates: start: 201806

REACTIONS (1)
  - Surgery [Unknown]
